FAERS Safety Report 9767353 (Version 1)
Quarter: 2013Q4

REPORT INFORMATION
  Report Type: Spontaneous
  Country: US (occurrence: US)
  Receive Date: 20131217
  Receipt Date: 20131217
  Transmission Date: 20140711
  Serious: No
  Sender: FDA-Public Use
  Company Number: US-PFIZER INC-2013355381

PATIENT
  Sex: Female

DRUGS (4)
  1. PANTOPRAZOLE [Suspect]
     Dosage: UNK
  2. PREVACID [Suspect]
     Dosage: UNK
  3. PEPCID [Suspect]
     Dosage: UNK
  4. PLAVIX [Suspect]
     Dosage: UNK

REACTIONS (3)
  - Gastric disorder [Recovered/Resolved]
  - Abdominal distension [Recovered/Resolved]
  - Malaise [Recovered/Resolved]
